FAERS Safety Report 8309008-7 (Version None)
Quarter: 2012Q2

REPORT INFORMATION
  Report Type: 
  Country: None (occurrence: None)
  Receive Date: 20120424
  Receipt Date: 20120420
  Transmission Date: 20120825
  Serious: Yes (Death)
  Sender: FDA-Public Use
  Company Number: GB-ROCHE-1047410

PATIENT
  Sex: Female

DRUGS (1)
  1. LUCENTIS [Suspect]
     Indication: AGE-RELATED MACULAR DEGENERATION
     Route: 050
     Dates: start: 20080807, end: 20110113

REACTIONS (2)
  - MYOCARDIAL ISCHAEMIA [None]
  - CHRONIC OBSTRUCTIVE PULMONARY DISEASE [None]
